FAERS Safety Report 13105080 (Version 1)
Quarter: 2017Q1

REPORT INFORMATION
  Report Type: Spontaneous
  Country: US (occurrence: US)
  Receive Date: 20170111
  Receipt Date: 20170111
  Transmission Date: 20170428
  Serious: No
  Sender: FDA-Public Use
  Company Number: US-SUN PHARMACEUTICAL INDUSTRIES LTD-2016US-116063

PATIENT
  Age: 53 Year
  Sex: Female

DRUGS (1)
  1. HALOG [Suspect]
     Active Substance: HALCINONIDE
     Indication: PSORIASIS
     Dosage: UNK
     Route: 065
     Dates: start: 20160429, end: 20160502

REACTIONS (2)
  - Erythema [Recovered/Resolved]
  - Skin burning sensation [Recovered/Resolved]

NARRATIVE: CASE EVENT DATE: 20160429
